FAERS Safety Report 5060896-X (Version None)
Quarter: 2006Q2

REPORT INFORMATION
  Report Type: 
  Country: None (occurrence: None)
  Receive Date: 20060630
  Receipt Date: 20060112
  Transmission Date: 20061013
  Serious: Yes (Life-Threatening, Hospitalization, Disabling)
  Sender: FDA-Public Use
  Company Number: 432087

PATIENT
  Age: 76 Year
  Sex: Female
  Weight: 80.7 kg

DRUGS (2)
  1. CELLCEPT [Suspect]
     Indication: MYASTHENIA GRAVIS
     Dosage: 2 PER DAY ORAL
     Route: 048
     Dates: start: 20020806, end: 20060126
  2. MESTINON [Concomitant]

REACTIONS (1)
  - LYMPHOMA [None]
